FAERS Safety Report 16998007 (Version 1)
Quarter: 2019Q4

REPORT INFORMATION
  Report Type: Spontaneous
  Country: US (occurrence: US)
  Receive Date: 20190924
  Receipt Date: 20190924
  Transmission Date: 20200122
  Serious: Yes (Hospitalization)
  Sender: FDA-Public Use
  Company Number: None

PATIENT
  Age: 49 Year
  Sex: Male

DRUGS (1)
  1. LEUKINE [Suspect]
     Active Substance: SARGRAMOSTIM
     Route: 058

REACTIONS (5)
  - Product dose omission [None]
  - Neoplasm malignant [None]
  - Amnesia [None]
  - Treatment noncompliance [None]
  - Fall [None]
